FAERS Safety Report 5660157-1 (Version None)
Quarter: 2008Q1

REPORT INFORMATION
  Report Type: 
  Country: None (occurrence: None)
  Receive Date: 20080306
  Receipt Date: 20080227
  Transmission Date: 20080703
  Serious: Yes (Hospitalization)
  Sender: FDA-Public Use
  Company Number: 2008BI005433

PATIENT
  Sex: Male

DRUGS (1)
  1. TYSABRI [Suspect]
     Dosage: IV
     Route: 042

REACTIONS (2)
  - CLOSTRIDIUM DIFFICILE COLITIS [None]
  - WHITE BLOOD CELL COUNT INCREASED [None]
